FAERS Safety Report 6034193-X (Version None)
Quarter: 2009Q1

REPORT INFORMATION
  Report Type: 
  Country: None (occurrence: None)
  Receive Date: 20090112
  Receipt Date: 20081229
  Transmission Date: 20090719
  Serious: Yes (Other)
  Sender: FDA-Public Use
  Company Number: US-BAYER-200814434BCC

PATIENT
  Age: 52 Year
  Sex: Male
  Weight: 136 kg

DRUGS (3)
  1. ALEVE [Suspect]
     Indication: PAIN
  2. ASPIRIN [Suspect]
     Indication: PAIN
  3. ASPIRIN [Suspect]
     Indication: PAIN

REACTIONS (2)
  - ASTHENIA [None]
  - HAEMORRHAGE [None]
